FAERS Safety Report 7790578-2 (Version None)
Quarter: 2011Q3

REPORT INFORMATION
  Report Type: 
  Country: None (occurrence: None)
  Receive Date: 20110930
  Receipt Date: 20110923
  Transmission Date: 20111222
  Serious: Yes (Hospitalization, Other)
  Sender: FDA-Public Use
  Company Number: US-B.I. PHARMACEUTICALS,INC./RIDGEFIELD-2011-BP-18714BP

PATIENT
  Sex: Female

DRUGS (16)
  1. TOPROL-XL [Concomitant]
     Dosage: 25 MG
  2. DIOVAN [Concomitant]
     Dosage: 160 MG
  3. POTASSIUM [Concomitant]
     Dosage: 20 MEQ
  4. AMLODIPINE [Concomitant]
     Dosage: 5 MG
  5. BONIVA [Concomitant]
  6. XALATAN [Concomitant]
     Route: 031
  7. ASCORBIC ACID [Concomitant]
     Dosage: 1000 MG
  8. LEVOTHYROXINE [Concomitant]
     Dosage: 100 MCG
  9. VITAMIN D [Concomitant]
     Dosage: 1000 MG
  10. ASPIRIN [Concomitant]
     Dosage: 81 MG
  11. CALTRATE WITH VITAMIN D [Concomitant]
  12. PRADAXA [Suspect]
     Indication: ATRIAL FIBRILLATION
     Dosage: 300 MG
     Route: 048
     Dates: start: 20110329
  13. TORSEMIDE [Concomitant]
     Dosage: 40 MG
  14. VITAMIN E [Concomitant]
     Dosage: 800 U
  15. VITAMIN B6 [Concomitant]
     Dosage: 200 MG
  16. CENTRUM [Concomitant]

REACTIONS (3)
  - HYPOTENSION [None]
  - GASTROINTESTINAL HAEMORRHAGE [None]
  - PULMONARY HYPERTENSION [None]
